FAERS Safety Report 5716891-8 (Version None)
Quarter: 2008Q2

REPORT INFORMATION
  Report Type: 
  Country: None (occurrence: None)
  Receive Date: 20080424
  Receipt Date: 20080328
  Transmission Date: 20081010
  Serious: No
  Sender: FDA-Public Use
  Company Number: US-BOEHRINGER INGELHEIM GMBH, GERMANY-2008-BP-04860BP

PATIENT
  Age: 74 Year
  Sex: Male

DRUGS (4)
  1. FLOMAX [Suspect]
     Indication: BENIGN PROSTATIC HYPERPLASIA
     Route: 048
     Dates: start: 20080322
  2. METFORMIN HCL [Concomitant]
  3. LIPITOR [Concomitant]
  4. SIMVASTATIN [Concomitant]

REACTIONS (3)
  - DIZZINESS POSTURAL [None]
  - DYSPNOEA [None]
  - PALPITATIONS [None]
